FAERS Safety Report 4962884-8 (Version None)
Quarter: 2006Q2

REPORT INFORMATION
  Report Type: 
  Country: None (occurrence: None)
  Receive Date: 20060405
  Receipt Date: 20051203
  Transmission Date: 20061013
  Serious: Yes (Hospitalization, Other)
  Sender: FDA-Public Use
  Company Number: PHNU2005DE04000

PATIENT
  Age: 78 Year
  Sex: Female
  Weight: 68 kg

DRUGS (12)
  1. CLOZARIL [Suspect]
     Indication: PSYCHOTIC DISORDER
     Dosage: 50 MG, UNK
     Route: 048
     Dates: end: 20051114
  2. BELOC ZOK [Concomitant]
     Dosage: 0.5 DF, BID
  3. MELPERONE [Concomitant]
  4. OXAZEPAM [Concomitant]
  5. EUTHYROX [Concomitant]
  6. DETRUSITOL [Concomitant]
  7. CALCIUM GLUCONATE [Concomitant]
  8. LORAZEPAM [Concomitant]
  9. CLINDAMYCIN [Suspect]
     Indication: PROPHYLAXIS
     Dosage: 600 MG, TID
     Route: 048
     Dates: start: 20051001
  10. STAPHYLEX [Suspect]
     Indication: PROPHYLAXIS
     Dosage: 1000 MG, TID
     Dates: start: 20051001
  11. PANTOZOL [Concomitant]
  12. CORANGIN [Concomitant]
     Dosage: 40 MG, BID

REACTIONS (2)
  - LEUKOPENIA [None]
  - SURGERY [None]
